FAERS Safety Report 8488059-6 (Version None)
Quarter: 2012Q3

REPORT INFORMATION
  Report Type: 
  Country: None (occurrence: None)
  Receive Date: 20120705
  Receipt Date: 20120619
  Transmission Date: 20120928
  Serious: Yes (Hospitalization)
  Sender: FDA-Public Use
  Company Number: FR-SANOFI-AVENTIS-2012SA043677

PATIENT
  Age: 76 Year
  Sex: Female

DRUGS (7)
  1. RIFADIN [Suspect]
     Route: 048
     Dates: start: 20120502, end: 20120516
  2. VANCOMYCIN [Suspect]
     Route: 042
     Dates: start: 20120427, end: 20120502
  3. ESIDRIX [Suspect]
     Route: 048
     Dates: start: 20120418, end: 20120504
  4. DAPTOMYCIN [Suspect]
     Route: 042
     Dates: start: 20120502, end: 20120516
  5. IPERTEN [Concomitant]
     Route: 048
  6. KARDEGIC [Concomitant]
     Route: 048
  7. FUROSEMIDE [Suspect]
     Route: 048
     Dates: start: 20120427, end: 20120501

REACTIONS (2)
  - HYPOKALAEMIA [None]
  - ELECTROCARDIOGRAM T WAVE AMPLITUDE DECREASED [None]
